FAERS Safety Report 9486246 (Version 1)
Quarter: 2013Q3

REPORT INFORMATION
  Report Type: Spontaneous
  Country: NO (occurrence: None)
  Receive Date: 20130823
  Receipt Date: 20130823
  Transmission Date: 20140515
  Serious: Yes (Hospitalization)
  Sender: FDA-Public Use
  Company Number: CL-514-2013

PATIENT
  Age: 72 Year
  Sex: Male

DRUGS (38)
  1. FLUCONAZOLE [Suspect]
     Indication: FUNGAL INFECTION
     Dates: start: 1950, end: 20130506
  2. PRO-EPANUTIN [Suspect]
     Route: 040
     Dates: start: 20130430, end: 20130430
  3. PRO-EPANUTIN [Suspect]
     Route: 040
     Dates: start: 20130430, end: 20130430
  4. PROPOFOL [Suspect]
     Indication: CONVULSION
     Dosage: 10 PER DAY
     Dates: start: 20130427, end: 20130428
  5. AMINOPHYLLINE [Suspect]
     Indication: ASTHMA
     Dates: start: 20130516, end: 20130520
  6. FENTANYL [Suspect]
     Indication: SEDATION
     Dates: start: 20130426, end: 20130428
  7. FLUMAZENIL [Suspect]
     Indication: REVERSAL OF SEDATION
     Dates: start: 20130516, end: 20130516
  8. CATAPRESAN [Suspect]
     Indication: SEDATION
     Dates: start: 20130502, end: 20130509
  9. STESOLID [Suspect]
     Indication: CONVULSION
     Dates: start: 20130429, end: 20130503
  10. DEXDOR [Suspect]
     Indication: SEDATION
     Dates: start: 20130428, end: 20130501
  11. MIDAZOLAM [Suspect]
     Indication: SEDATION
     Dates: start: 20130426
  12. DALACIN (CLINDAMYCIN HYDROCHLORIDE) [Concomitant]
  13. FRAGMIN (HEPARIN FRACTION SODIUM SALT) [Concomitant]
  14. SOLU-CORTEF (HYDROCORTISONE SODIUM SUCCINATE) [Concomitant]
  15. NALOXONE [Concomitant]
  16. AFIPRAN (METOCHLOPRAMIDE HYDROCHLORIDE) [Concomitant]
  17. ACTRAPID PENFILL (INSULIN HUMAN) [Concomitant]
  18. NOREPINEPHRINE [Concomitant]
  19. CEFUROXIM [Concomitant]
  20. DIAMOX [Concomitant]
  21. BURINEX [Concomitant]
  22. POTASSIUM CITRATE [Concomitant]
  23. SULFAMETHOXAZOLE-TRIMETHOPRIM [Concomitant]
  24. CLONAZEPAM [Concomitant]
  25. SALBUTAMOL [Concomitant]
  26. MONTELUKAST SODIUM [Concomitant]
  27. POTASSIUM CHLORIDE [Concomitant]
  28. SPIRINOLACTONE [Concomitant]
  29. IPRATROPUIM BROMIDE [Concomitant]
  30. METHYLNALTREXONE [Concomitant]
  31. VANCOMYCIN [Concomitant]
  32. CETIRIZINE [Concomitant]
  33. HEPARIN FRACTION SODIUM SALT [Concomitant]
  34. MEROPENEM [Concomitant]
  35. HYDROCHLOROTHIAZIDE [Concomitant]
  36. LEVETORACETAM [Concomitant]
  37. SODIUM PICOSULFATE [Concomitant]
  38. PANTOPRAZOLE SODIUM [Concomitant]

REACTIONS (8)
  - Coma [None]
  - Drug interaction [None]
  - Drug effect prolonged [None]
  - Asthma [None]
  - Cardiac arrest [None]
  - Brain injury [None]
  - Hypoxia [None]
  - Fungal infection [None]
